FAERS Safety Report 13049885 (Version 2)
Quarter: 2017Q3

REPORT INFORMATION
  Report Type: Report from Study
  Country: TW (occurrence: TW)
  Receive Date: 20161221
  Receipt Date: 20170920
  Transmission Date: 20171127
  Serious: Yes (Hospitalization)
  Sender: FDA-Public Use
  Company Number: TW-EISAI MEDICAL RESEARCH-EC-2016-022446

PATIENT
  Age: 59 Year
  Sex: Male
  Weight: 65.8 kg

DRUGS (19)
  1. CONSRINE SYRUP [Concomitant]
  2. DIAZEPAM. [Concomitant]
     Active Substance: DIAZEPAM
  3. ZONISAMIDE. [Concomitant]
     Active Substance: ZONISAMIDE
  4. BETHANECHOL [Concomitant]
     Active Substance: BETHANECHOL
  5. ESTAZOLAM. [Concomitant]
     Active Substance: ESTAZOLAM
  6. LITHIUM. [Concomitant]
     Active Substance: LITHIUM
  7. PIRACETAM [Concomitant]
     Active Substance: PIRACETAM
  8. FYCOMPA [Suspect]
     Active Substance: PERAMPANEL
     Route: 048
     Dates: start: 20161210, end: 20161231
  9. FYCOMPA [Suspect]
     Active Substance: PERAMPANEL
     Route: 048
     Dates: start: 20170101
  10. QUETIAPINE. [Concomitant]
     Active Substance: QUETIAPINE
  11. THYROXINE [Concomitant]
     Active Substance: LEVOTHYROXINE
  12. BISACODYL. [Concomitant]
     Active Substance: BISACODYL
  13. SILODOSIN [Concomitant]
     Active Substance: SILODOSIN
  14. PROPANOLOL [Concomitant]
     Active Substance: PROPRANOLOL HYDROCHLORIDE
  15. LAMOTRIGINE. [Concomitant]
     Active Substance: LAMOTRIGINE
  16. ACETAMINOPHEN. [Concomitant]
     Active Substance: ACETAMINOPHEN
  17. GENDERON [Concomitant]
  18. FYCOMPA [Suspect]
     Active Substance: PERAMPANEL
     Indication: EPILEPSY
     Route: 048
     Dates: start: 20160919, end: 20161209
  19. DULOXETINE. [Concomitant]
     Active Substance: DULOXETINE

REACTIONS (4)
  - Altered state of consciousness [Recovered/Resolved]
  - Major depression [Recovering/Resolving]
  - Irritability [Recovered/Resolved]
  - Aggression [Recovered/Resolved]

NARRATIVE: CASE EVENT DATE: 20161017
